FAERS Safety Report 7759197-8 (Version None)
Quarter: 2011Q3

REPORT INFORMATION
  Report Type: 
  Country: None (occurrence: None)
  Receive Date: 20110919
  Receipt Date: 20110912
  Transmission Date: 20111222
  Serious: No
  Sender: FDA-Public Use
  Company Number: US-B.I. PHARMACEUTICALS,INC./RIDGEFIELD-2010-BP-04941BP

PATIENT
  Sex: Female
  Weight: 85.28 kg

DRUGS (26)
  1. CYMBALTA [Concomitant]
     Indication: DEPRESSION
     Dosage: 60 MG
     Route: 048
  2. KETOCANAZOLE [Concomitant]
  3. MIRAPEX [Suspect]
     Indication: RESTLESS LEGS SYNDROME
     Dosage: 0.5 MG-2.5 MG
     Route: 048
     Dates: start: 20080201, end: 20100401
  4. CELEBREX [Concomitant]
     Indication: DEPRESSION
     Dosage: 200 MG
     Route: 048
  5. GLUCOSAMINE [Concomitant]
     Route: 048
  6. HYDROCHLOROTHIAZIDE [Concomitant]
     Indication: HYPERTENSION
     Dosage: 12.5 MG
     Route: 048
  7. ZANAFLEX [Concomitant]
     Route: 048
  8. VITAMIN D [Concomitant]
     Route: 048
  9. MIRAPEX [Suspect]
     Indication: FIBROMYALGIA
  10. TIZANIDINE HCL [Concomitant]
     Indication: SLEEP DISORDER
  11. GABAPENTIN [Concomitant]
     Dosage: 1200 MG
     Route: 048
  12. LYRICA [Concomitant]
  13. TYLENOL PM EXTRA STRENGTH [Concomitant]
     Route: 048
  14. PILOCARPINE HCL [Concomitant]
     Dosage: 15 MG
     Route: 048
  15. LORTAB [Concomitant]
     Route: 048
  16. SIMVASTATIN [Concomitant]
     Dosage: 20 MG
     Route: 048
  17. LOVAZA [Concomitant]
     Route: 048
  18. ASPIRIN [Concomitant]
     Dosage: 81 MG
     Route: 048
  19. AMLODIPINE [Concomitant]
     Indication: HYPERTENSION
     Dosage: 5 MG
     Route: 048
  20. NEURONTIN [Concomitant]
     Dosage: 1200 MG
     Route: 048
  21. DISTOLIC [Concomitant]
     Indication: HYPERTENSION
  22. DETROL LA [Concomitant]
     Indication: URINARY INCONTINENCE
     Dosage: 4 MG
     Route: 048
  23. QUINAPRIL HCL [Concomitant]
     Indication: HYPERTENSION
     Route: 048
  24. VOLTAREN [Concomitant]
  25. ASCORBIC ACID [Concomitant]
     Route: 048
  26. FAMCICLOVIR [Concomitant]
     Dosage: 100 MG
     Route: 048

REACTIONS (9)
  - BLOOD PRESSURE INCREASED [None]
  - INSOMNIA [None]
  - SUDDEN ONSET OF SLEEP [None]
  - EMOTIONAL DISTRESS [None]
  - FATIGUE [None]
  - DEPRESSION [None]
  - COMPULSIVE SHOPPING [None]
  - MANIA [None]
  - ANXIETY [None]
